FAERS Safety Report 15885810 (Version 1)
Quarter: 2019Q1

REPORT INFORMATION
  Report Type: Spontaneous
  Country: US (occurrence: US)
  Receive Date: 20190125
  Receipt Date: 20190125
  Transmission Date: 20190417
  Serious: No
  Sender: FDA-Public Use
  Company Number: None

PATIENT
  Age: 31 Year
  Sex: Male
  Weight: 113.4 kg

DRUGS (1)
  1. CIMZIA [Suspect]
     Active Substance: CERTOLIZUMAB PEGOL
     Indication: ANKYLOSING SPONDYLITIS
     Dosage: INJECT 400MG (2 SYRINGES) SUBCUTANEOUSLY EVERY 4 WEEKS AS DIRECTED
     Route: 058
     Dates: start: 201805

REACTIONS (2)
  - Musculoskeletal disorder [None]
  - Condition aggravated [None]
